FAERS Safety Report 4860990-X (Version None)
Quarter: 2005Q4

REPORT INFORMATION
  Report Type: 
  Country: None (occurrence: None)
  Receive Date: 20051220
  Receipt Date: 20051118
  Transmission Date: 20060501
  Serious: Yes (Other)
  Sender: FDA-Public Use
  Company Number: PHBS2005FI17242

PATIENT
  Age: 48 Year
  Sex: Female

DRUGS (5)
  1. ZOMETA [Suspect]
     Indication: NEUROPATHIC ARTHROPATHY
     Dosage: 4 MG, ONCE/SINGLE
     Route: 065
     Dates: start: 20041101, end: 20041101
  2. ZOMETA [Suspect]
     Dosage: 4 MG, ONCE/SINGLE
     Route: 065
     Dates: start: 20050929, end: 20050929
  3. LEVEMIR [Concomitant]
     Indication: DIABETES MELLITUS
     Dosage: 46 IU/D
     Route: 065
  4. HUMALOG [Concomitant]
     Dosage: 6 IU/D
     Route: 065
  5. COZAAR [Concomitant]
     Indication: HYPERTONIA
     Dosage: 100 MG/D
     Route: 048

REACTIONS (5)
  - BLOOD ALKALINE PHOSPHATASE INCREASED [None]
  - EYE DEGENERATIVE DISORDER [None]
  - EYE PAIN [None]
  - VISUAL ACUITY REDUCED [None]
  - VITH NERVE PARALYSIS [None]
